FAERS Safety Report 6212552-X (Version None)
Quarter: 2009Q2

REPORT INFORMATION
  Report Type: 
  Country: None (occurrence: None)
  Receive Date: 20090602
  Receipt Date: 20090602
  Transmission Date: 20091009
  Serious: Yes (Hospitalization)
  Sender: FDA-Public Use
  Company Number: None

PATIENT
  Sex: Female
  Weight: 68.8 kg

DRUGS (4)
  1. ONCASPAR [Suspect]
     Indication: ACUTE LYMPHOCYTIC LEUKAEMIA
     Dosage: 4325 UNITS ONCE INTRAMUSCULAR
     Route: 030
     Dates: start: 20090526
  2. ONCASPAR [Suspect]
  3. METHOTREXATE [Concomitant]
  4. PLATELETS [Concomitant]

REACTIONS (7)
  - CHILLS [None]
  - LIP SWELLING [None]
  - NAUSEA [None]
  - PYREXIA [None]
  - THROAT TIGHTNESS [None]
  - URTICARIA [None]
  - VOMITING [None]
